FAERS Safety Report 20911468 (Version 2)
Quarter: 2022Q3

REPORT INFORMATION
  Report Type: Spontaneous
  Country: US (occurrence: US)
  Receive Date: 20220603
  Receipt Date: 20220920
  Transmission Date: 20221026
  Serious: No
  Sender: FDA-Public Use
  Company Number: US-BRISTOL-MYERS SQUIBB COMPANY-2022-051834

PATIENT
  Age: 75 Year
  Sex: Female

DRUGS (2)
  1. REVLIMID [Suspect]
     Active Substance: LENALIDOMIDE
     Indication: Plasma cell myeloma
     Dosage: TAKE 1 CAPSULE BY MOUTH EVERY DAY FOR 14 D ON THEN 7 DAY OFF FOR A 21 DAY CYCLE
     Route: 065
     Dates: start: 20220425
  2. REVLIMID [Suspect]
     Active Substance: LENALIDOMIDE
     Dosage: FOR 14 DAYS FOLLOWED BY 7 DAYS OFF
     Route: 048
     Dates: start: 20220425

REACTIONS (1)
  - Peripheral swelling [Unknown]
